FAERS Safety Report 5379366-4 (Version None)
Quarter: 2007Q3

REPORT INFORMATION
  Report Type: 
  Country: None (occurrence: None)
  Receive Date: 20070705
  Receipt Date: 20070625
  Transmission Date: 20080115
  Serious: Yes (Hospitalization, Disabling, Other)
  Sender: FDA-Public Use
  Company Number: US-PFIZER INC-2007053458

PATIENT
  Sex: Female
  Weight: 79.4 kg

DRUGS (1)
  1. PREDNISONE TAB [Suspect]
     Indication: CROHN'S DISEASE
     Dates: start: 19880101, end: 19970101

REACTIONS (2)
  - ARTHRITIS [None]
  - CROHN'S DISEASE [None]
